FAERS Safety Report 12162911 (Version 2)
Quarter: 2016Q1

REPORT INFORMATION
  Report Type: Report from Study
  Country: US (occurrence: US)
  Receive Date: 20160309
  Receipt Date: 20160330
  Transmission Date: 20160526
  Serious: Yes (Hospitalization, Other)
  Sender: FDA-Public Use
  Company Number: US-GILEAD-2016-0202308

PATIENT
  Age: 62 Year
  Sex: Female

DRUGS (29)
  1. SENNA                              /00142201/ [Concomitant]
     Active Substance: SENNA LEAF
  2. MEDITONSIN                         /00118101/ [Concomitant]
  3. DURAGESIC [Concomitant]
     Active Substance: FENTANYL
  4. NITROSTAT [Concomitant]
     Active Substance: NITROGLYCERIN
  5. DERMALEX [Concomitant]
  6. NOVATIN                            /00908901/ [Concomitant]
  7. FERROUS SULFATE [Concomitant]
     Active Substance: FERROUS SULFATE\FERROUS SULFATE, DRIED
  8. ATIVAN [Concomitant]
     Active Substance: LORAZEPAM
  9. DOCUSATE [Concomitant]
     Active Substance: DOCUSATE
  10. TOPROL XL [Concomitant]
     Active Substance: METOPROLOL SUCCINATE
  11. PRILOSEC [Concomitant]
     Active Substance: OMEPRAZOLE MAGNESIUM
  12. ASPIRIN                            /00002701/ [Concomitant]
     Active Substance: ASPIRIN
  13. ZOTRAMID [Concomitant]
     Active Substance: ACETAMINOPHEN\TRAMADOL HYDROCHLORIDE
  14. ZAROXOLYN [Concomitant]
     Active Substance: METOLAZONE
  15. ISOSORBIDE MONONITRATE. [Concomitant]
     Active Substance: ISOSORBIDE MONONITRATE
  16. FLUOXETINE [Concomitant]
     Active Substance: FLUOXETINE HYDROCHLORIDE
  17. COMBIVENT [Concomitant]
     Active Substance: ALBUTEROL SULFATE\IPRATROPIUM BROMIDE
  18. CLOPIDOGREL [Concomitant]
     Active Substance: CLOPIDOGREL BISULFATE
  19. LIPITOR [Concomitant]
     Active Substance: ATORVASTATIN CALCIUM
  20. ULTRAM [Concomitant]
     Active Substance: TRAMADOL HYDROCHLORIDE
  21. AMBRISENTAN [Suspect]
     Active Substance: AMBRISENTAN
     Indication: PRODUCT USED FOR UNKNOWN INDICATION
     Dosage: 5 MG, QD
     Route: 065
     Dates: start: 20150301
  22. WELLBUTRIN [Concomitant]
     Active Substance: BUPROPION HYDROCHLORIDE
  23. TYLENOL [Concomitant]
     Active Substance: ACETAMINOPHEN
  24. DUONEM [Concomitant]
  25. TYVASO [Concomitant]
     Active Substance: TREPROSTINIL
  26. MIRALAX [Concomitant]
     Active Substance: POLYETHYLENE GLYCOL 3350
  27. VITAMIN C [Concomitant]
     Active Substance: ASCORBIC ACID
  28. ADVAIR HFA [Concomitant]
     Active Substance: FLUTICASONE PROPIONATE\SALMETEROL XINAFOATE
  29. NORVASC [Concomitant]
     Active Substance: AMLODIPINE BESYLATE

REACTIONS (3)
  - Cardiac failure congestive [Not Recovered/Not Resolved]
  - Dyspnoea [Recovered/Resolved]
  - Fluid retention [Not Recovered/Not Resolved]

NARRATIVE: CASE EVENT DATE: 20160227
